FAERS Safety Report 23033110 (Version 10)
Quarter: 2025Q2

REPORT INFORMATION
  Report Type: Spontaneous
  Country: US (occurrence: US)
  Receive Date: 20231005
  Receipt Date: 20250523
  Transmission Date: 20250717
  Serious: Yes (Other)
  Sender: PFIZER
  Company Number: US-PFIZER INC-PV202300161307

PATIENT
  Age: 71 Year
  Sex: Female

DRUGS (1)
  1. IBRANCE [Suspect]
     Active Substance: PALBOCICLIB
     Indication: Breast cancer metastatic
     Route: 048

REACTIONS (6)
  - Metastases to bone [Unknown]
  - Malignant neoplasm progression [Unknown]
  - Cataract [Unknown]
  - Pneumonia [Unknown]
  - Product prescribing error [Unknown]
  - Stress [Unknown]

NARRATIVE: CASE EVENT DATE: 20230101
